FAERS Safety Report 24737662 (Version 1)
Quarter: 2024Q4

REPORT INFORMATION
  Report Type: Report from Study
  Country: US (occurrence: US)
  Receive Date: 20241216
  Receipt Date: 20241216
  Transmission Date: 20250115
  Serious: Yes (Hospitalization, Other)
  Sender: HRA PHARMA
  Company Number: US-ORG100014127-2024000306

PATIENT
  Age: 69 Year
  Sex: Female

DRUGS (18)
  1. LYSODREN [Suspect]
     Active Substance: MITOTANE
     Indication: Adrenocortical carcinoma
     Dosage: TAKE 5 TABLETS TWICE DAILY
     Route: 048
     Dates: start: 20240412, end: 2024
  2. CENTRUM TAB ULTRA [Concomitant]
     Indication: Product used for unknown indication
  3. CINNAMON CAP 500MG [Concomitant]
     Indication: Product used for unknown indication
  4. HUMALOG KWIK INJ 100/ML [Concomitant]
     Indication: Product used for unknown indication
  5. HYDRALAZINE [Concomitant]
     Active Substance: HYDRALAZINE HYDROCHLORIDE
     Indication: Product used for unknown indication
  6. HYDROCORTISO CRE 2.5% [Concomitant]
     Indication: Product used for unknown indication
  7. LANTUS INJ 100/ML [Concomitant]
     Indication: Product used for unknown indication
  8. MOUNJARO INJ 12.5/0.5 [Concomitant]
     Indication: Product used for unknown indication
  9. MYRBETRIQ [Concomitant]
     Active Substance: MIRABEGRON
     Indication: Product used for unknown indication
  10. OLANZAPINE TAB 2.5MG [Concomitant]
     Indication: Product used for unknown indication
  11. PANTOPRAZOLE TAB 40MG [Concomitant]
     Indication: Product used for unknown indication
  12. PRAVASTATIN TAB 40MG [Concomitant]
     Indication: Product used for unknown indication
  13. PREDNISONE [Concomitant]
     Active Substance: PREDNISONE
     Indication: Product used for unknown indication
  14. PROMETHAZINE TAB 25MG [Concomitant]
     Indication: Product used for unknown indication
  15. SOLU-CORTEF [Concomitant]
     Active Substance: HYDROCORTISONE SODIUM SUCCINATE
     Indication: Product used for unknown indication
  16. TRIAMCINOLON CRE 0.1% [Concomitant]
     Indication: Product used for unknown indication
  17. URSODIOL CAP 300MG [Concomitant]
     Indication: Product used for unknown indication
  18. VITAMIN D CAP 50000UNT [Concomitant]
     Indication: Product used for unknown indication

REACTIONS (5)
  - Renal impairment [Not Recovered/Not Resolved]
  - Mental fatigue [Not Recovered/Not Resolved]
  - Vomiting [Not Recovered/Not Resolved]
  - Food intolerance [Unknown]
  - Vomiting [Unknown]
